FAERS Safety Report 25264504 (Version 1)
Quarter: 2025Q2

REPORT INFORMATION
  Report Type: Spontaneous
  Country: US (occurrence: US)
  Receive Date: 20250502
  Receipt Date: 20250502
  Transmission Date: 20250717
  Serious: No
  Sender: Karo Pharma
  Company Number: US-Karo Pharma-2176060

PATIENT
  Age: 49 Year
  Sex: Male
  Weight: 92.063 kg

DRUGS (4)
  1. TERBINAFINE HYDROCHLORIDE [Suspect]
     Active Substance: TERBINAFINE HYDROCHLORIDE
     Indication: Product used for unknown indication
  2. ESCITALOPRAM [Suspect]
     Active Substance: ESCITALOPRAM OXALATE
  3. ATORVASTATIN [Suspect]
     Active Substance: ATORVASTATIN
  4. LISINOPRIL [Suspect]
     Active Substance: LISINOPRIL

REACTIONS (5)
  - Pigmentation disorder [Unknown]
  - Psoriasis [Unknown]
  - Neurodermatitis [Unknown]
  - Overweight [Unknown]
  - Treatment failure [Unknown]
